FAERS Safety Report 13716055 (Version 2)
Quarter: 2017Q3

REPORT INFORMATION
  Report Type: Spontaneous
  Country: ES (occurrence: ES)
  Receive Date: 20170705
  Receipt Date: 20170802
  Transmission Date: 20171127
  Serious: Yes (Death, Other)
  Sender: FDA-Public Use
  Company Number: ES-ASTRAZENECA-2017SE68055

PATIENT
  Age: 25880 Day
  Sex: Male
  Weight: 70 kg

DRUGS (2)
  1. OSIMERTINIB. [Suspect]
     Active Substance: OSIMERTINIB
     Indication: LUNG ADENOCARCINOMA STAGE IV
     Dosage: DOSE UNKNOWN
     Route: 048
     Dates: start: 20170302
  2. OSIMERTINIB. [Suspect]
     Active Substance: OSIMERTINIB
     Indication: LUNG ADENOCARCINOMA STAGE IV
     Dosage: DOSE UNKNOWN
     Route: 048
     Dates: start: 20160512, end: 20161201

REACTIONS (4)
  - Petechiae [Recovered/Resolved]
  - Pulmonary embolism [Fatal]
  - Malignant neoplasm progression [Fatal]
  - Drug ineffective [Unknown]

NARRATIVE: CASE EVENT DATE: 20170310
